FAERS Safety Report 12393279 (Version 1)
Quarter: 2016Q2

REPORT INFORMATION
  Report Type: Spontaneous
  Country: CA (occurrence: None)
  Receive Date: 20160520
  Receipt Date: 20160520
  Transmission Date: 20160815
  Serious: Yes (Hospitalization, Disabling, Other)
  Sender: FDA-Public Use
  Company Number: None

PATIENT
  Age: 24 Year
  Sex: Male
  Weight: 78.02 kg

DRUGS (4)
  1. EFFEXOR XR [Suspect]
     Active Substance: VENLAFAXINE HYDROCHLORIDE
     Indication: DEPRESSION
     Dates: start: 20140806, end: 20150525
  2. ANTI-FLAMATORY PILLS [Concomitant]
  3. CIALIS [Concomitant]
     Active Substance: TADALAFIL
  4. ABILIFY [Suspect]
     Active Substance: ARIPIPRAZOLE
     Indication: DEPRESSION
     Route: 048
     Dates: start: 20140806, end: 20150525

REACTIONS (7)
  - Penile vascular disorder [None]
  - Erectile dysfunction [None]
  - Disturbance in attention [None]
  - Nerve injury [None]
  - Suicidal ideation [None]
  - Vascular pain [None]
  - Activities of daily living impaired [None]

NARRATIVE: CASE EVENT DATE: 20150110
